FAERS Safety Report 23752229 (Version 1)
Quarter: 2024Q2

REPORT INFORMATION
  Report Type: Spontaneous
  Country: US (occurrence: None)
  Receive Date: 20240417
  Receipt Date: 20240417
  Transmission Date: 20240716
  Serious: No
  Sender: FDA-Public Use
  Company Number: None

PATIENT
  Age: 52 Year
  Sex: Female
  Weight: 64 kg

DRUGS (3)
  1. CARBOPLATIN [Suspect]
     Active Substance: CARBOPLATIN
     Dates: end: 20240328
  2. DOCETAXEL [Suspect]
     Active Substance: DOCETAXEL\DOCETAXEL ANHYDROUS
     Dates: end: 20240328
  3. PEMBROLIZUMAB [Suspect]
     Active Substance: PEMBROLIZUMAB
     Dates: end: 20240328

REACTIONS (7)
  - Haematochezia [None]
  - Enterocolitis [None]
  - Ascites [None]
  - Colitis ischaemic [None]
  - Metabolic encephalopathy [None]
  - Sepsis [None]
  - Neutropenia [None]

NARRATIVE: CASE EVENT DATE: 20240401
